FAERS Safety Report 11911173 (Version 3)
Quarter: 2016Q1

REPORT INFORMATION
  Report Type: Report from Study
  Country: KR (occurrence: KR)
  Receive Date: 20160112
  Receipt Date: 20160309
  Transmission Date: 20160526
  Serious: Yes (Hospitalization)
  Sender: FDA-Public Use
  Company Number: KR-CONCORDIA LABORATORIES INC.-PIN-2015-00063

PATIENT
  Age: 55 Year
  Sex: Male

DRUGS (55)
  1. GEMCITABINE [Suspect]
     Active Substance: GEMCITABINE\GEMCITABINE HYDROCHLORIDE
     Indication: CHOLANGIOCARCINOMA
     Route: 042
     Dates: start: 20151001, end: 20151001
  2. GEMCITABINE [Suspect]
     Active Substance: GEMCITABINE\GEMCITABINE HYDROCHLORIDE
     Route: 042
     Dates: start: 20151028, end: 20151028
  3. MEGACE F [Concomitant]
     Indication: PROPHYLAXIS
     Route: 048
     Dates: start: 20151022, end: 20151212
  4. HARTMANN SOLN [Concomitant]
     Active Substance: CALCIUM CHLORIDE\POTASSIUM CHLORIDE\SODIUM CHLORIDE\SODIUM LACTATE
     Route: 042
     Dates: start: 20151211, end: 20151211
  5. NORMAL SALINE [Concomitant]
     Active Substance: SODIUM CHLORIDE
     Route: 042
     Dates: start: 20151128, end: 20151128
  6. GEMCITABINE [Suspect]
     Active Substance: GEMCITABINE\GEMCITABINE HYDROCHLORIDE
     Route: 042
     Dates: start: 20151211, end: 20151211
  7. CISPLATIN. [Suspect]
     Active Substance: CISPLATIN
     Route: 042
     Dates: start: 20151211, end: 20151211
  8. TARGIN [Concomitant]
     Active Substance: NALOXONE HYDROCHLORIDE\OXYCODONE HYDROCHLORIDE
     Indication: DISEASE COMPLICATION
     Route: 048
     Dates: start: 20151025, end: 20151120
  9. MUCOSTA [Concomitant]
     Active Substance: REBAMIPIDE
     Indication: PROPHYLAXIS
     Route: 048
     Dates: start: 20151022, end: 20151228
  10. RESOLOR [Concomitant]
     Active Substance: PRUCALOPRIDE SUCCINATE
     Indication: PROPHYLAXIS
     Route: 048
     Dates: start: 20151106, end: 20151212
  11. NORMAL SALINE [Concomitant]
     Active Substance: SODIUM CHLORIDE
     Indication: PYREXIA
     Route: 042
     Dates: start: 20151127, end: 20151127
  12. CISPLATIN. [Suspect]
     Active Substance: CISPLATIN
     Route: 042
     Dates: start: 20151028, end: 20151028
  13. URSA [Concomitant]
     Indication: DISEASE COMPLICATION
     Route: 048
     Dates: start: 20151022, end: 20151225
  14. NORMAL SALINE [Concomitant]
     Active Substance: SODIUM CHLORIDE
     Route: 042
     Dates: start: 20151201, end: 20151201
  15. MACPERAN [Concomitant]
     Route: 042
     Dates: start: 20151128, end: 20151128
  16. MACPERAN [Concomitant]
     Route: 042
     Dates: start: 20151211, end: 20151211
  17. PHAZYME [Concomitant]
     Active Substance: DIMETHICONE 410
     Indication: PROPHYLAXIS
     Route: 048
     Dates: start: 20151127, end: 20151211
  18. DENOGAN [Concomitant]
     Indication: PYREXIA
     Route: 042
     Dates: start: 20151128, end: 20151128
  19. CISPLATIN. [Suspect]
     Active Substance: CISPLATIN
     Indication: CHOLANGIOCARCINOMA
     Route: 042
     Dates: start: 20151001, end: 20151001
  20. DUROGESIC [Concomitant]
     Active Substance: FENTANYL
     Indication: DISEASE COMPLICATION
     Route: 003
     Dates: start: 20150923
  21. ONSERAN [Concomitant]
     Indication: PROPHYLAXIS
     Route: 048
     Dates: start: 20151029, end: 20151126
  22. MAGNESIUM OXIDE. [Concomitant]
     Active Substance: MAGNESIUM OXIDE
     Indication: PROPHYLAXIS
     Route: 048
     Dates: start: 20151106, end: 20151212
  23. HARTMANN SOLN [Concomitant]
     Active Substance: CALCIUM CHLORIDE\POTASSIUM CHLORIDE\SODIUM CHLORIDE\SODIUM LACTATE
     Indication: PROPHYLAXIS
     Route: 042
     Dates: start: 20151121, end: 20151121
  24. NASERON [Concomitant]
     Indication: PROPHYLAXIS
     Route: 042
     Dates: start: 20151121, end: 20151121
  25. RAMOSETRON HCL [Concomitant]
     Indication: VOMITING
     Route: 042
     Dates: start: 20151201, end: 20151201
  26. CISPLATIN. [Suspect]
     Active Substance: CISPLATIN
     Route: 042
     Dates: start: 20151121, end: 20151121
  27. CISPLATIN. [Suspect]
     Active Substance: CISPLATIN
     Route: 042
     Dates: start: 20151127, end: 20151127
  28. SANCUSO [Concomitant]
     Active Substance: GRANISETRON
     Route: 003
     Dates: start: 20151210, end: 20151210
  29. NASERON [Concomitant]
     Route: 042
     Dates: start: 20151211, end: 20151211
  30. KANITRON [Concomitant]
     Indication: PROPHYLAXIS
     Route: 048
     Dates: start: 20151127, end: 20151201
  31. PHOTOFRIN [Suspect]
     Active Substance: PORFIMER SODIUM
     Indication: CHOLANGIOCARCINOMA
     Route: 042
     Dates: start: 20150909, end: 20150909
  32. GEMCITABINE [Suspect]
     Active Substance: GEMCITABINE\GEMCITABINE HYDROCHLORIDE
     Route: 042
     Dates: start: 20151106, end: 20151106
  33. CISPLATIN. [Suspect]
     Active Substance: CISPLATIN
     Route: 042
     Dates: start: 20151010, end: 20151010
  34. CISPLATIN. [Suspect]
     Active Substance: CISPLATIN
     Route: 042
     Dates: start: 20151106, end: 20151106
  35. CISPLATIN. [Suspect]
     Active Substance: CISPLATIN
     Route: 042
     Dates: start: 20151218, end: 20151218
  36. GODEX [Concomitant]
     Indication: DISEASE COMPLICATION
     Route: 048
     Dates: start: 20151026, end: 20151120
  37. NASERON [Concomitant]
     Route: 042
     Dates: start: 20151127, end: 20151127
  38. BANAN [Concomitant]
     Active Substance: CEFPODOXIME PROXETIL
     Indication: PROPHYLAXIS
     Route: 048
     Dates: start: 20151128, end: 20151204
  39. TYLENOL ER [Concomitant]
     Active Substance: ACETAMINOPHEN
     Indication: PROPHYLAXIS
     Route: 048
     Dates: start: 20151128, end: 20151204
  40. GEMCITABINE [Suspect]
     Active Substance: GEMCITABINE\GEMCITABINE HYDROCHLORIDE
     Route: 042
     Dates: start: 20151121, end: 20151121
  41. GEMCITABINE [Suspect]
     Active Substance: GEMCITABINE\GEMCITABINE HYDROCHLORIDE
     Route: 042
     Dates: start: 20151218, end: 20151218
  42. LANSTON [Concomitant]
     Active Substance: LANSOPRAZOLE
     Indication: PROPHYLAXIS
     Route: 048
     Dates: start: 20151022, end: 20151120
  43. NORMAL SALINE [Concomitant]
     Active Substance: SODIUM CHLORIDE
     Indication: PROPHYLAXIS
     Route: 042
     Dates: start: 20151121, end: 20151121
  44. MACPERAN [Concomitant]
     Indication: PYREXIA
     Route: 042
     Dates: start: 20151127, end: 20151127
  45. MACPERAN [Concomitant]
     Route: 042
     Dates: start: 20151201, end: 20151201
  46. GEMCITABINE [Suspect]
     Active Substance: GEMCITABINE\GEMCITABINE HYDROCHLORIDE
     Route: 042
     Dates: start: 20151010, end: 20151010
  47. GEMCITABINE [Suspect]
     Active Substance: GEMCITABINE\GEMCITABINE HYDROCHLORIDE
     Route: 042
     Dates: start: 20151127, end: 20151127
  48. TARGIN [Concomitant]
     Active Substance: NALOXONE HYDROCHLORIDE\OXYCODONE HYDROCHLORIDE
     Route: 048
     Dates: start: 20151121, end: 20151212
  49. FENTORA [Concomitant]
     Active Substance: FENTANYL CITRATE
     Indication: DISEASE COMPLICATION
     Route: 048
     Dates: start: 20151026, end: 20151212
  50. SANCUSO [Concomitant]
     Active Substance: GRANISETRON
     Indication: PROPHYLAXIS
     Route: 003
     Dates: start: 20151120, end: 20151120
  51. SANCUSO [Concomitant]
     Active Substance: GRANISETRON
     Route: 003
     Dates: start: 20151126, end: 20151126
  52. NORMAL SALINE [Concomitant]
     Active Substance: SODIUM CHLORIDE
     Route: 042
     Dates: start: 20151128, end: 20151128
  53. NORMAL SALINE [Concomitant]
     Active Substance: SODIUM CHLORIDE
     Route: 042
     Dates: start: 20151211, end: 20151211
  54. MACPERAN [Concomitant]
     Indication: PROPHYLAXIS
     Route: 042
     Dates: start: 20151121, end: 20151121
  55. FREAMINE III NOS [Concomitant]
     Active Substance: AMINO ACIDS
     Indication: VOMITING
     Route: 042
     Dates: start: 20151201, end: 20151201

REACTIONS (1)
  - Septic shock [Recovered/Resolved]

NARRATIVE: CASE EVENT DATE: 20151211
